FAERS Safety Report 7632612-6 (Version None)
Quarter: 2011Q3

REPORT INFORMATION
  Report Type: 
  Country: None (occurrence: None)
  Receive Date: 20110725
  Receipt Date: 20101028
  Transmission Date: 20111222
  Serious: No
  Sender: FDA-Public Use
  Company Number: US-BRISTOL-MYERS SQUIBB COMPANY-15357452

PATIENT
  Age: 96 Year
  Sex: Female

DRUGS (2)
  1. COUMADIN [Suspect]
     Dosage: MON AND THUR HALF THE AMOUNT
  2. VOLTAREN [Interacting]
     Indication: ARTHRALGIA
     Dosage: GEL:LAST 2 TO 3 MONTHS:FOUR TIMES A DAY
     Route: 061

REACTIONS (5)
  - DRUG LEVEL INCREASED [None]
  - MALAISE [None]
  - VOMITING [None]
  - NAUSEA [None]
  - DRUG INTERACTION [None]
